FAERS Safety Report 10830521 (Version 1)
Quarter: 2015Q1

REPORT INFORMATION
  Report Type: Spontaneous
  Country: US (occurrence: US)
  Receive Date: 20150219
  Receipt Date: 20150219
  Transmission Date: 20150721
  Serious: No
  Sender: FDA-Public Use
  Company Number: US-PFIZER INC-2015062058

PATIENT
  Age: 51 Year
  Sex: Female
  Weight: 94.33 kg

DRUGS (3)
  1. GABAPENTIN. [Suspect]
     Active Substance: GABAPENTIN
     Dosage: UNK
  2. ROBAXIN [Concomitant]
     Active Substance: METHOCARBAMOL
  3. SKELAXIN [Concomitant]
     Active Substance: METAXALONE

REACTIONS (2)
  - Drug ineffective [Unknown]
  - Disorientation [Unknown]
